FAERS Safety Report 5739732-1 (Version None)
Quarter: 2008Q2

REPORT INFORMATION
  Report Type: 
  Country: None (occurrence: None)
  Receive Date: 20080512
  Receipt Date: 20080512
  Transmission Date: 20081010
  Serious: Yes (Hospitalization)
  Sender: FDA-Public Use
  Company Number: None

PATIENT
  Age: 29 Year
  Sex: Male

DRUGS (2)
  1. PHENYTOIN [Suspect]
     Indication: CONVULSION
     Dosage: 300MG DAILY PO
     Route: 048
  2. VALPROIC ACID [Suspect]
     Indication: CONVULSION
     Dosage: PO
     Route: 048

REACTIONS (3)
  - ANTICONVULSANT DRUG LEVEL INCREASED [None]
  - FALL [None]
  - GAIT DISTURBANCE [None]
